FAERS Safety Report 15238992 (Version 2)
Quarter: 2018Q3

REPORT INFORMATION
  Report Type: Spontaneous
  Country: CA (occurrence: CA)
  Receive Date: 20180803
  Receipt Date: 20180824
  Transmission Date: 20181010
  Serious: Yes (Other)
  Sender: FDA-Public Use
  Company Number: CA-PFIZER INC-2018310759

PATIENT
  Age: 22 Year
  Sex: Male

DRUGS (1)
  1. BENEFIX [Suspect]
     Active Substance: COAGULATION FACTOR IX RECOMBINANT HUMAN\ISOPROPYL ALCOHOL
     Indication: FACTOR IX DEFICIENCY

REACTIONS (9)
  - Scar [Unknown]
  - Fracture [Unknown]
  - Joint range of motion decreased [Recovering/Resolving]
  - Post procedural haemorrhage [Unknown]
  - Joint swelling [Recovering/Resolving]
  - Muscle tightness [Unknown]
  - Hypertonia [Unknown]
  - Haemarthrosis [Recovered/Resolved]
  - Trendelenburg^s symptom [Recovering/Resolving]

NARRATIVE: CASE EVENT DATE: 201805
